FAERS Safety Report 14493336 (Version 1)
Quarter: 2018Q1

REPORT INFORMATION
  Report Type: Spontaneous
  Country: US (occurrence: US)
  Receive Date: 20180206
  Receipt Date: 20180206
  Transmission Date: 20180509
  Serious: Yes (Hospitalization, Other)
  Sender: FDA-Public Use
  Company Number: US-JNJFOC-20180200260

PATIENT
  Age: 52 Year
  Sex: Female
  Weight: 77.11 kg

DRUGS (4)
  1. TOPAMAX [Suspect]
     Active Substance: TOPIRAMATE
     Indication: GENERALISED TONIC-CLONIC SEIZURE
     Route: 048
  2. TOPIRAMATE. [Suspect]
     Active Substance: TOPIRAMATE
     Indication: MIGRAINE
     Route: 048
  3. TOPAMAX [Suspect]
     Active Substance: TOPIRAMATE
     Indication: MIGRAINE
     Route: 048
  4. TOPIRAMATE. [Suspect]
     Active Substance: TOPIRAMATE
     Indication: GENERALISED TONIC-CLONIC SEIZURE
     Route: 048

REACTIONS (11)
  - Sensory disturbance [Unknown]
  - Pneumonia [Not Recovered/Not Resolved]
  - Road traffic accident [Unknown]
  - Malaise [Unknown]
  - Feeling abnormal [Unknown]
  - Nervousness [Unknown]
  - Frustration tolerance decreased [Unknown]
  - Dysstasia [Unknown]
  - Abdominal mass [Unknown]
  - Haematochezia [Unknown]
  - Headache [Unknown]

NARRATIVE: CASE EVENT DATE: 201801
